FAERS Safety Report 10560940 (Version 7)
Quarter: 2015Q2

REPORT INFORMATION
  Report Type: Spontaneous
  Country: US (occurrence: US)
  Receive Date: 20141103
  Receipt Date: 20150417
  Transmission Date: 20150821
  Serious: Yes (Other)
  Sender: FDA-Public Use
  Company Number: US-PFIZER INC-2014298503

PATIENT
  Age: 71 Year
  Sex: Male
  Weight: 106.58 kg

DRUGS (25)
  1. PRAMIPEXOLE [Concomitant]
     Active Substance: PRAMIPEXOLE
     Dosage: 1 DF, DAILY
     Route: 048
  2. HYDROCHLOROTHIAZIDE. [Concomitant]
     Active Substance: HYDROCHLOROTHIAZIDE
     Dosage: 1 CAPSULE, DAILY
     Route: 048
  3. SUTENT [Suspect]
     Active Substance: SUNITINIB MALATE
     Dosage: 50 MG, UNK
  4. SUTENT [Suspect]
     Active Substance: SUNITINIB MALATE
     Dosage: 25 MG, DAILY 28 DAYS ON 14 OFF
     Route: 048
  5. COQ 10 [Concomitant]
     Active Substance: UBIDECARENONE
     Dosage: 1 CAPSULE, DAILY
     Route: 048
  6. PAXIL [Concomitant]
     Active Substance: PAROXETINE HYDROCHLORIDE
     Dosage: 1 DF, DAILY
     Route: 048
  7. RAPAFLO [Concomitant]
     Active Substance: SILODOSIN
     Dosage: 1 CAPSULE, DAILY
     Route: 048
  8. ALBUTEROL SULFATE HFA [Concomitant]
     Dosage: UNK
     Route: 055
     Dates: start: 20131205
  9. HYDROCODONE [Concomitant]
     Active Substance: HYDROCODONE
     Dosage: UNK, AS NEEDED
  10. LANTUS [Concomitant]
     Active Substance: INSULIN GLARGINE
     Dosage: 100 UNITS/ML, AS DIRECTED
     Route: 058
  11. GLIPIZIDE. [Concomitant]
     Active Substance: GLIPIZIDE
     Dosage: 1-2 TABLETS, DAILY
     Route: 048
  12. ADVAIR DISKUS [Concomitant]
     Active Substance: FLUTICASONE PROPIONATE\SALMETEROL XINAFOATE
     Dosage: 1-2 INHALATION DAILY
     Route: 055
  13. VENTOLIN HFA [Concomitant]
     Active Substance: ALBUTEROL SULFATE
     Dosage: UNK, EVERY 4 HRS
     Route: 055
  14. IRON [Concomitant]
     Active Substance: IRON
     Dosage: 1-2 TABLET, DAILY
     Route: 048
  15. VITAMIN D [Concomitant]
     Active Substance: CHOLECALCIFEROL
     Dosage: 50000 IU (1), UNK
     Route: 048
  16. AMLODIPINE BESYLATE. [Concomitant]
     Active Substance: AMLODIPINE BESYLATE
     Dosage: 1 TABLET, DAILY
     Route: 048
  17. FLONASE [Concomitant]
     Active Substance: FLUTICASONE PROPIONATE
     Dosage: 2 PUFFS (OF 50MCG/ACT) DAILY
     Route: 045
  18. SUTENT [Suspect]
     Active Substance: SUNITINIB MALATE
     Dosage: 25 MG, DAILY
     Dates: start: 20141231, end: 20150327
  19. OMEPRAZOLE. [Concomitant]
     Active Substance: OMEPRAZOLE
     Dosage: 40 MG, DAILY
     Route: 048
  20. SUTENT [Suspect]
     Active Substance: SUNITINIB MALATE
     Indication: METASTATIC RENAL CELL CARCINOMA
     Dosage: 50 MG, CYCLIC (FOR 4 WEEKS ON 2 WEEKS OFF)
     Route: 048
     Dates: start: 20140613, end: 20141013
  21. FISH OIL [Concomitant]
     Active Substance: FISH OIL
     Dosage: 2 CAPSULES, DAILY
     Route: 048
  22. SUTENT [Suspect]
     Active Substance: SUNITINIB MALATE
     Dosage: 25 MG, UNK
     Route: 048
     Dates: start: 20141231
  23. LISINOPRIL. [Concomitant]
     Active Substance: LISINOPRIL
     Dosage: 1 TABLET, DAILY
     Route: 048
  24. ASPIRIN. [Concomitant]
     Active Substance: ASPIRIN
     Dosage: 81 MG, DAILY
     Route: 048
  25. AUGMENTIN [Concomitant]
     Active Substance: AMOXICILLIN\CLAVULANATE POTASSIUM
     Dosage: 1-2 TABLET,DAILY
     Route: 048
     Dates: start: 20140912

REACTIONS (18)
  - Postoperative wound infection [Recovering/Resolving]
  - Blister [Recovering/Resolving]
  - Dysgeusia [Not Recovered/Not Resolved]
  - Pain in extremity [Recovering/Resolving]
  - Foot fracture [Recovering/Resolving]
  - Blood glucose decreased [Recovering/Resolving]
  - Influenza [Unknown]
  - Skin disorder [Recovering/Resolving]
  - Palmar-plantar erythrodysaesthesia syndrome [Recovering/Resolving]
  - Sinus disorder [Not Recovered/Not Resolved]
  - Dyspnoea [Recovering/Resolving]
  - Pleural effusion [Unknown]
  - Paraesthesia [Recovering/Resolving]
  - Cellulitis [Recovering/Resolving]
  - Pain [Recovering/Resolving]
  - Nausea [Recovering/Resolving]
  - Arthralgia [Recovering/Resolving]
  - Skin ulcer [Recovering/Resolving]

NARRATIVE: CASE EVENT DATE: 2014
